FAERS Safety Report 6902100-0 (Version None)
Quarter: 2010Q3

REPORT INFORMATION
  Report Type: 
  Country: None (occurrence: None)
  Receive Date: 20100803
  Receipt Date: 20080421
  Transmission Date: 20110219
  Serious: No
  Sender: FDA-Public Use
  Company Number: US-PFIZER INC-2008032637

PATIENT
  Sex: Female
  Weight: 76.363 kg

DRUGS (3)
  1. LYRICA [Suspect]
     Dosage: 50 MG, 1X/DAY
     Dates: start: 20080401, end: 20080401
  2. ADVAIR DISKUS 100/50 [Concomitant]
  3. NASONEX [Concomitant]

REACTIONS (3)
  - DRUG INEFFECTIVE [None]
  - SOMNOLENCE [None]
  - URTICARIA [None]
